FAERS Safety Report 8538629-1 (Version None)
Quarter: 2012Q3

REPORT INFORMATION
  Report Type: 
  Country: None (occurrence: None)
  Receive Date: 20120718
  Receipt Date: 20120718
  Transmission Date: 20120928
  Serious: Yes (Other)
  Sender: FDA-Public Use
  Company Number: None

PATIENT
  Sex: Female
  Weight: 49.8957 kg

DRUGS (1)
  1. ANASTROZOLE [Suspect]
     Indication: BREAST CANCER
     Dosage: 1 MG (1 TAB) Q DAY ORAL
     Route: 048
     Dates: start: 20120608, end: 20120614

REACTIONS (2)
  - PAIN [None]
  - GAIT DISTURBANCE [None]
